FAERS Safety Report 8511553-6 (Version None)
Quarter: 2012Q3

REPORT INFORMATION
  Report Type: 
  Country: None (occurrence: None)
  Receive Date: 20120716
  Receipt Date: 20120709
  Transmission Date: 20120928
  Serious: Yes (Other)
  Sender: FDA-Public Use
  Company Number: PHHY2012CA027850

PATIENT
  Sex: Female

DRUGS (3)
  1. SANDOSTATIN LAR [Suspect]
     Indication: ACROMEGALY
     Dosage: 30 MG, QMO
     Route: 030
     Dates: start: 20120306
  2. SANDOSTATIN LAR [Suspect]
     Dosage: 30 MG, EVERY 4 WEEKS
     Route: 030
  3. SANDOSTATIN LAR [Suspect]
     Dosage: 40 MG, QMO
     Route: 030

REACTIONS (9)
  - INCORRECT DOSE ADMINISTERED [None]
  - ALOPECIA [None]
  - BLOOD GLUCOSE DECREASED [None]
  - HEADACHE [None]
  - PITUITARY TUMOUR [None]
  - ANXIETY [None]
  - FEELING JITTERY [None]
  - TREMOR [None]
  - BLOOD GLUCOSE FLUCTUATION [None]
